FAERS Safety Report 23811912 (Version 1)
Quarter: 2024Q2

REPORT INFORMATION
  Report Type: Spontaneous
  Country: US (occurrence: US)
  Receive Date: 20240503
  Receipt Date: 20240503
  Transmission Date: 20240716
  Serious: No
  Sender: FDA-Public Use
  Company Number: US-HALEON-2172144

PATIENT
  Age: 56 Year
  Sex: Male

DRUGS (1)
  1. SENSODYNE COMPLETE PROTECTION EXTRA FRESH [Suspect]
     Active Substance: STANNOUS FLUORIDE
     Indication: Product used for unknown indication
     Dosage: EXPDATE:202410
     Dates: start: 20240426, end: 20240426

REACTIONS (4)
  - Oral discomfort [Not Recovered/Not Resolved]
  - Oral mucosal blistering [Unknown]
  - Oral herpes [Unknown]
  - Lip exfoliation [Unknown]

NARRATIVE: CASE EVENT DATE: 20240426
